FAERS Safety Report 7918332-9 (Version None)
Quarter: 2011Q4

REPORT INFORMATION
  Report Type: 
  Country: None (occurrence: None)
  Receive Date: 20111116
  Receipt Date: 20111110
  Transmission Date: 20120403
  Serious: Yes (Death, Other)
  Sender: FDA-Public Use
  Company Number: JP-PFIZER INC-2011276094

PATIENT
  Age: 41 Year
  Sex: Male
  Weight: 57.3 kg

DRUGS (2)
  1. CHLOR-TRIMETON [Concomitant]
     Indication: PROPHYLAXIS
     Dosage: 1 % 1 ML, ONCE DAILY
     Route: 042
     Dates: start: 20110712
  2. TEMSIROLIMUS [Suspect]
     Indication: RENAL CELL CARCINOMA
     Dosage: 25 MG, WEEKLY
     Route: 042
     Dates: start: 20110712

REACTIONS (2)
  - FUNGAL INFECTION [None]
  - DEATH [None]
